FAERS Safety Report 5125201-9 (Version None)
Quarter: 2006Q4

REPORT INFORMATION
  Report Type: 
  Country: None (occurrence: None)
  Receive Date: 20061006
  Receipt Date: 20060928
  Transmission Date: 20070319
  Serious: Yes (Hospitalization, Other)
  Sender: FDA-Public Use
  Company Number: A0622118A

PATIENT
  Sex: Male

DRUGS (1)
  1. ADVAIR DISKUS 100/50 [Suspect]
     Indication: ASTHMA
     Dosage: INHALED
     Route: 055
     Dates: end: 20060928

REACTIONS (3)
  - ANXIETY [None]
  - DYSPNOEA EXERTIONAL [None]
  - WHEEZING [None]
